FAERS Safety Report 18624259 (Version 1)
Quarter: 2020Q4

REPORT INFORMATION
  Report Type: Spontaneous
  Country: PR (occurrence: PR)
  Receive Date: 20201216
  Receipt Date: 20201216
  Transmission Date: 20210114
  Serious: Yes (Other)
  Sender: FDA-Public Use
  Company Number: PR-BAYER-2020-271983

PATIENT
  Sex: Male

DRUGS (1)
  1. STIVARGA [Suspect]
     Active Substance: REGORAFENIB
     Indication: RECTAL CANCER
     Dosage: DAILY DOSE 160 MG ON 21 DAYS AND 7 REST
     Dates: start: 20200406, end: 2020

REACTIONS (2)
  - Therapeutic response unexpected [None]
  - Tumour marker increased [None]
